FAERS Safety Report 7916100 (Version 3)
Quarter: 2014Q1

REPORT INFORMATION
  Report Type: Spontaneous
  Country: US (occurrence: US)
  Receive Date: 20110427
  Receipt Date: 20140207
  Transmission Date: 20141002
  Serious: Yes (Hospitalization)
  Sender: FDA-Public Use
  Company Number: US-BAYER-2010-002171

PATIENT
  Age: 21 Year
  Sex: Female
  Weight: 101 kg

DRUGS (1)
  1. YAZ [Suspect]
     Indication: CONTRACEPTION
     Dosage: UNK
     Dates: start: 200607, end: 200707

REACTIONS (2)
  - Cholelithiasis [None]
  - Cholecystitis chronic [None]
